FAERS Safety Report 5290212-X (Version None)
Quarter: 2007Q2

REPORT INFORMATION
  Report Type: 
  Country: None (occurrence: None)
  Receive Date: 20070402
  Receipt Date: 20070322
  Transmission Date: 20071010
  Serious: Yes (Other)
  Sender: FDA-Public Use
  Company Number: US019671

PATIENT
  Age: 58 Year
  Sex: Male
  Weight: 102.3 kg

DRUGS (9)
  1. PROVIGIL [Suspect]
     Indication: SLEEP APNOEA SYNDROME
     Dosage: 200 MG QD ORAL
     Route: 048
     Dates: start: 20070221, end: 20070227
  2. PROVIGIL [Suspect]
     Indication: SLEEP APNOEA SYNDROME
     Dosage: 200 MG ONCE ORAL
     Route: 048
     Dates: start: 20070301, end: 20070301
  3. PROVIGIL [Suspect]
     Indication: SLEEP APNOEA SYNDROME
     Dosage: 100 MG ONCE ORAL
     Route: 048
     Dates: start: 20070301, end: 20070301
  4. OMEGA 3 [Concomitant]
  5. MULTIVITAMIN /00831701/ [Concomitant]
  6. ADVIL /00109201/ [Concomitant]
  7. ADDERALL 10 [Concomitant]
  8. ALKA-SELTZER PLUS COLD /00446801 [Concomitant]
  9. DAYQUIL /00761701 [Concomitant]

REACTIONS (6)
  - DYSPHAGIA [None]
  - ERYTHEMA MULTIFORME [None]
  - INFLUENZA LIKE ILLNESS [None]
  - NASOPHARYNGITIS [None]
  - ORAL INTAKE REDUCED [None]
  - STEVENS-JOHNSON SYNDROME [None]
